FAERS Safety Report 24156084 (Version 2)
Quarter: 2024Q3

REPORT INFORMATION
  Report Type: Spontaneous
  Country: US (occurrence: US)
  Receive Date: 20240731
  Receipt Date: 20240919
  Transmission Date: 20241017
  Serious: No
  Sender: GLAUKOS
  Company Number: US-GLK-002365

PATIENT
  Age: 30 Year
  Sex: Female

DRUGS (25)
  1. PHOTREXA [Suspect]
     Active Substance: RIBOFLAVIN 5^-PHOSPHATE SODIUM
     Indication: Keratoconus
     Dosage: SN 375135969005
     Route: 047
     Dates: start: 20240709, end: 20240709
  2. PHOTREXA VISCOUS [Suspect]
     Active Substance: RIBOFLAVIN 5^-PHOSPHATE SODIUM
     Indication: Keratoconus
     Route: 047
     Dates: start: 20240709, end: 20240709
  3. CLOBAZAM [Concomitant]
     Active Substance: CLOBAZAM
  4. FLUTICASONE PROPIONATE [Concomitant]
     Active Substance: FLUTICASONE PROPIONATE
  5. ACETAMINOPHEN\HYDROCODONE [Concomitant]
     Active Substance: ACETAMINOPHEN\HYDROCODONE
  6. MIDAZOLAM [Concomitant]
     Active Substance: MIDAZOLAM
  7. Erythromycin Ung [Concomitant]
     Dosage: QHS OU (EVERY BEDTIME IN BOTH EYES)
  8. ADVIL [Concomitant]
     Active Substance: IBUPROFEN\IBUPROFEN SODIUM
     Dosage: 600-800MG; EVERY 6-8 HOURS
  9. TYLENOL [Concomitant]
     Active Substance: ACETAMINOPHEN
     Dosage: 500-600MG
  10. AZELASTINE HYDROCHLORIDE [Concomitant]
     Active Substance: AZELASTINE HYDROCHLORIDE
  11. CANNABIDIOL [Concomitant]
     Active Substance: CANNABIDIOL
  12. CEFUROXIME AXETIL [Concomitant]
     Active Substance: CEFUROXIME AXETIL
  13. CETIRIZINE HCL [Concomitant]
     Active Substance: CETIRIZINE HYDROCHLORIDE
  14. CLONAZEPAM [Concomitant]
     Active Substance: CLONAZEPAM
  15. ERYTHROMYCIN [Concomitant]
     Active Substance: ERYTHROMYCIN
  16. LEVETIRACETAM [Concomitant]
     Active Substance: LEVETIRACETAM
  17. MONTELUKAST SODIUM [Concomitant]
     Active Substance: MONTELUKAST\MONTELUKAST SODIUM
  18. NALOXONE [Concomitant]
     Active Substance: NALOXONE
  19. PHENOBARBITAL [Concomitant]
     Active Substance: PHENOBARBITAL
  20. PHENYTOIN [Concomitant]
     Active Substance: PHENYTOIN
  21. SULFAMETHOXAZOLE\TRIMETHOPRIM [Concomitant]
     Active Substance: SULFAMETHOXAZOLE\TRIMETHOPRIM
  22. VIGABATRIN [Concomitant]
     Active Substance: VIGABATRIN
  23. Artificial Tears [Concomitant]
     Dosage: OU (BOTH EYES)
  24. MOXIFLOXACIN [Concomitant]
     Active Substance: MOXIFLOXACIN
     Dosage: STARTED 2 DAYS PRIOR TO SURGERY
     Dates: start: 20240707
  25. PREDNISOLONE ACETATE [Concomitant]
     Active Substance: PREDNISOLONE ACETATE

REACTIONS (2)
  - Product use issue [Unknown]
  - No adverse event [Unknown]

NARRATIVE: CASE EVENT DATE: 20240709
